FAERS Safety Report 14041157 (Version 1)
Quarter: 2017Q4

REPORT INFORMATION
  Report Type: Report from Study
  Country: US (occurrence: US)
  Receive Date: 20171004
  Receipt Date: 20171004
  Transmission Date: 20180321
  Serious: No
  Sender: FDA-Public Use
  Company Number: US-AMGEN-USASP2015080397

PATIENT
  Sex: Female

DRUGS (1)
  1. PROLIA [Suspect]
     Active Substance: DENOSUMAB
     Indication: OSTEOPOROSIS POSTMENOPAUSAL
     Dosage: Q6MO
     Route: 065
     Dates: start: 201507

REACTIONS (11)
  - Musculoskeletal pain [Not Recovered/Not Resolved]
  - Crying [Unknown]
  - Peripheral swelling [Unknown]
  - Road traffic accident [Unknown]
  - Neck pain [Not Recovered/Not Resolved]
  - Pain [Unknown]
  - Fall [Unknown]
  - Back pain [Not Recovered/Not Resolved]
  - Mobility decreased [Unknown]
  - Feeling abnormal [Unknown]
  - Injury [Unknown]

NARRATIVE: CASE EVENT DATE: 2015
